FAERS Safety Report 19739630 (Version 1)
Quarter: 2021Q3

REPORT INFORMATION
  Report Type: Report from Study
  Country: US (occurrence: US)
  Receive Date: 20210823
  Receipt Date: 20210823
  Transmission Date: 20211014
  Serious: Yes (Death, Hospitalization, Other)
  Sender: FDA-Public Use
  Company Number: US-B.I. PHARMACEUTICALS,INC./RIDGEFIELD-2021-BI-116173

PATIENT
  Age: 63 Year
  Sex: Male

DRUGS (2)
  1. OFEV [Suspect]
     Active Substance: NINTEDANIB
     Indication: IDIOPATHIC PULMONARY FIBROSIS
     Dosage: 150MG TWICE DAILY
     Route: 048
     Dates: start: 20210628, end: 20210807
  2. OFEV [Suspect]
     Active Substance: NINTEDANIB
     Route: 048
     Dates: start: 20210814

REACTIONS (9)
  - Abdominal discomfort [Unknown]
  - Abdominal pain upper [Not Recovered/Not Resolved]
  - Abdominal pain upper [Recovering/Resolving]
  - Weight decreased [Not Recovered/Not Resolved]
  - Influenza [Not Recovered/Not Resolved]
  - Nausea [Unknown]
  - Chromaturia [Recovered/Resolved]
  - Pneumonia [Fatal]
  - Decreased appetite [Not Recovered/Not Resolved]

NARRATIVE: CASE EVENT DATE: 2021
